FAERS Safety Report 12853703 (Version 1)
Quarter: 2016Q4

REPORT INFORMATION
  Report Type: Spontaneous
  Country: BR (occurrence: BR)
  Receive Date: 20161017
  Receipt Date: 20161017
  Transmission Date: 20170207
  Serious: Yes (Other)
  Sender: FDA-Public Use
  Company Number: BR-CIPLA LTD.-2016BR19245

PATIENT

DRUGS (1)
  1. TENOFOVIR/LAMIVUDINE/EFAVIRENZ TABLET [Suspect]
     Active Substance: EFAVIRENZ\LAMIVUDINE\TENOFOVIR
     Indication: HIV INFECTION
     Dosage: 1200 MG/DAY
     Route: 048
     Dates: start: 20140412

REACTIONS (2)
  - Stillbirth [Unknown]
  - Exposure during pregnancy [Unknown]

NARRATIVE: CASE EVENT DATE: 20160818
